FAERS Safety Report 15617939 (Version 1)
Quarter: 2018Q4

REPORT INFORMATION
  Report Type: Spontaneous
  Country: US (occurrence: US)
  Receive Date: 20181114
  Receipt Date: 20181114
  Transmission Date: 20190205
  Serious: No
  Sender: FDA-Public Use
  Company Number: US-PFIZER INC-2018461330

PATIENT
  Age: 68 Year
  Sex: Female

DRUGS (1)
  1. SOMAVERT [Suspect]
     Active Substance: PEGVISOMANT
     Dosage: 15 MG, DAILY

REACTIONS (5)
  - Blood growth hormone increased [Unknown]
  - Blood calcium increased [Unknown]
  - Thyroxine free increased [Unknown]
  - Blood thyroid stimulating hormone decreased [Unknown]
  - Blood sodium decreased [Unknown]
